FAERS Safety Report 10251400 (Version 1)
Quarter: 2014Q2

REPORT INFORMATION
  Report Type: Spontaneous
  Country: RU (occurrence: RU)
  Receive Date: 20140623
  Receipt Date: 20140623
  Transmission Date: 20141212
  Serious: Yes (Death, Other)
  Sender: FDA-Public Use
  Company Number: RU-009507513-1406RUS008742

PATIENT
  Sex: 0

DRUGS (3)
  1. CLARITINE [Suspect]
     Indication: SEASONAL ALLERGY
     Dosage: UNK
     Route: 064
     Dates: start: 2009, end: 2009
  2. DUPHASTON [Suspect]
     Route: 064
  3. FOLIC ACID [Suspect]
     Route: 064

REACTIONS (2)
  - Foetal death [Fatal]
  - Foetal exposure during pregnancy [Recovered/Resolved]
